FAERS Safety Report 12456067 (Version 1)
Quarter: 2016Q2

REPORT INFORMATION
  Report Type: Spontaneous
  Country: CN (occurrence: CN)
  Receive Date: 20160610
  Receipt Date: 20160610
  Transmission Date: 20160815
  Serious: Yes (Hospitalization)
  Sender: FDA-Public Use
  Company Number: CN-ASTRAZENECA-2016SE60501

PATIENT
  Sex: Female

DRUGS (8)
  1. MEDICATION [Concomitant]
     Active Substance: UNSPECIFIED INGREDIENT
  2. ESOMEPRAZOLE MAGNESIUM. [Suspect]
     Active Substance: ESOMEPRAZOLE MAGNESIUM
     Indication: GASTROOESOPHAGEAL REFLUX DISEASE
     Dosage: 20.0MG UNKNOWN
     Route: 048
     Dates: start: 2014, end: 2015
  3. LORAZEPAM. [Concomitant]
     Active Substance: LORAZEPAM
     Dosage: 1/4 TABLET IN THE MORNING AND HALF TABLET AT NIGHT
  4. LEXAPRO [Concomitant]
     Active Substance: ESCITALOPRAM OXALATE
  5. ESOMEPRAZOLE MAGNESIUM. [Suspect]
     Active Substance: ESOMEPRAZOLE MAGNESIUM
     Indication: CHRONIC GASTRITIS
     Dosage: 20.0MG UNKNOWN
     Route: 048
     Dates: start: 2014, end: 2015
  6. LOSEC [Suspect]
     Active Substance: OMEPRAZOLE
     Route: 048
     Dates: start: 2015
  7. LOSEC [Suspect]
     Active Substance: OMEPRAZOLE
     Route: 048
  8. QUETIAPINE. [Concomitant]
     Active Substance: QUETIAPINE
     Dosage: 1/4 TABLET DAILY

REACTIONS (7)
  - Cough [Not Recovered/Not Resolved]
  - Dysphoria [Unknown]
  - Dyspepsia [Not Recovered/Not Resolved]
  - Depression [Unknown]
  - Drug ineffective [Unknown]
  - Epigastric discomfort [Unknown]
  - Diarrhoea [Unknown]

NARRATIVE: CASE EVENT DATE: 20160205
